FAERS Safety Report 7903444-6 (Version None)
Quarter: 2011Q4

REPORT INFORMATION
  Report Type: 
  Country: None (occurrence: None)
  Receive Date: 20111108
  Receipt Date: 20111108
  Transmission Date: 20120403
  Serious: Yes (Death, Other)
  Sender: FDA-Public Use
  Company Number: None

PATIENT
  Age: 51 Year
  Sex: Male
  Weight: 63.5036 kg

DRUGS (5)
  1. MIDAZOLAM [Concomitant]
  2. LORAZEPAM [Concomitant]
  3. PROPOFOL [Suspect]
     Indication: INSOMNIA
     Dosage: 25-50 MG DRIP INTRAVENOUS USED NIGHTLY 8 WEEKS CONRAD MURRAY STATEMENT - 2 MONTHS
     Route: 042
  4. PROPOFOL [Suspect]
     Indication: OFF LABEL USE
     Dosage: 25-50 MG DRIP INTRAVENOUS USED NIGHTLY 8 WEEKS CONRAD MURRAY STATEMENT - 2 MONTHS
     Route: 042
  5. DX OPAMS [Concomitant]

REACTIONS (2)
  - CARDIAC ARREST [None]
  - PROPOFOL INFUSION SYNDROME [None]
